FAERS Safety Report 6756272-1 (Version None)
Quarter: 2010Q2

REPORT INFORMATION
  Report Type: 
  Country: None (occurrence: None)
  Receive Date: 20100603
  Receipt Date: 20100603
  Transmission Date: 20101027
  Serious: No
  Sender: FDA-Public Use
  Company Number: None

PATIENT
  Age: 7 Year
  Sex: Female

DRUGS (1)
  1. SANDOSTATIN LAR [Suspect]
     Indication: GLIOMA
     Dosage: 10MG EVERY 28 EAYS IM
     Route: 030
     Dates: start: 20070801

REACTIONS (1)
  - SCOTOMA [None]
